FAERS Safety Report 4822151-X (Version None)
Quarter: 2005Q4

REPORT INFORMATION
  Report Type: 
  Country: None (occurrence: None)
  Receive Date: 20051107
  Receipt Date: 20050624
  Transmission Date: 20060501
  Serious: Yes (Disabling)
  Sender: FDA-Public Use
  Company Number: DE-ABBOTT-05P-062-0304042-00

PATIENT
  Age: 47 Year
  Sex: Male

DRUGS (6)
  1. CLARITHROMYCIN [Suspect]
     Indication: HELICOBACTER INFECTION
     Route: 048
     Dates: start: 20041001
  2. CLARITHROMYCIN [Suspect]
     Indication: REFLUX OESOPHAGITIS
  3. PANTOPRAZOLE [Suspect]
     Indication: HELICOBACTER INFECTION
     Route: 048
     Dates: start: 20041001
  4. PANTOPRAZOLE [Suspect]
     Indication: REFLUX OESOPHAGITIS
  5. AMOXICILLIN [Suspect]
     Indication: HELICOBACTER INFECTION
     Route: 048
     Dates: start: 20041001
  6. AMOXICILLIN [Suspect]
     Indication: REFLUX OESOPHAGITIS

REACTIONS (4)
  - DRY MOUTH [None]
  - GLOSSODYNIA [None]
  - ORAL MUCOSAL EXFOLIATION [None]
  - TONGUE DISCOLOURATION [None]
